FAERS Safety Report 8054240-3 (Version None)
Quarter: 2012Q1

REPORT INFORMATION
  Report Type: 
  Country: None (occurrence: None)
  Receive Date: 20120118
  Receipt Date: 20120109
  Transmission Date: 20120608
  Serious: Yes (Hospitalization)
  Sender: FDA-Public Use
  Company Number: US-ASTRAZENECA-2012SE01475

PATIENT
  Age: 59 Year
  Sex: Female

DRUGS (10)
  1. ATACAND [Suspect]
     Indication: HYPERTENSION
     Route: 048
  2. VITAMINS AND VARIOUS SUPPLEMENTS [Concomitant]
     Indication: VITAMIN SUPPLEMENTATION
  3. CARDURA [Suspect]
     Indication: HYPERTENSION
     Route: 065
  4. HYDROCHLOROTHIAZIDE [Suspect]
     Indication: HYPERTENSION
     Route: 065
     Dates: start: 20000101, end: 20000101
  5. TEKTURNA [Suspect]
     Indication: HYPERTENSION
     Route: 065
  6. BP MEDICATIONS [Concomitant]
  7. ALLEGRA-D 12 HOUR [Concomitant]
     Indication: MULTIPLE ALLERGIES
  8. DIFFERENT MEDICATIONS AND DIFFERENT COMBINATIONS [Concomitant]
     Dates: start: 20001001
  9. SPIRONOLACTONE [Suspect]
     Indication: HYPERTENSION
     Route: 065
  10. SPIRONOLACTONE [Suspect]
     Route: 065
     Dates: start: 20080101

REACTIONS (5)
  - BLOOD PRESSURE FLUCTUATION [None]
  - OEDEMA [None]
  - DRUG INEFFECTIVE [None]
  - SWELLING [None]
  - HYPERTENSION [None]
